FAERS Safety Report 6176694-X (Version None)
Quarter: 2009Q2

REPORT INFORMATION
  Report Type: 
  Country: None (occurrence: None)
  Receive Date: 20090501
  Receipt Date: 20080303
  Transmission Date: 20091009
  Serious: Yes (Other)
  Sender: FDA-Public Use
  Company Number: FR-ALEXION-A200800035

PATIENT

DRUGS (18)
  1. SOLIRIS [Suspect]
     Indication: PAROXYSMAL NOCTURNAL HAEMOGLOBINURIA
     Dosage: 600 MG, SINGLE
     Route: 042
     Dates: start: 20070727, end: 20070727
  2. SOLIRIS [Suspect]
     Dosage: 600 MG, SINGLE
     Route: 042
     Dates: start: 20070803, end: 20070803
  3. SOLIRIS [Suspect]
     Dosage: 600 MG, SINGLE
     Route: 042
     Dates: start: 20070810, end: 20070810
  4. SOLIRIS [Suspect]
     Dosage: 600 MG, SINGLE
     Route: 042
     Dates: start: 20070818, end: 20070818
  5. SOLIRIS [Suspect]
     Dosage: 900 MG, SINGLE
     Route: 042
     Dates: start: 20070824, end: 20070824
  6. SOLIRIS [Suspect]
     Dosage: 900 MG, SINGLE
     Route: 042
     Dates: start: 20070907, end: 20070907
  7. SOLIRIS [Suspect]
     Dosage: 900 MG, SINGLE
     Route: 042
     Dates: start: 20070921, end: 20070921
  8. SOLIRIS [Suspect]
     Dosage: 900 MG, SINGLE
     Route: 042
     Dates: start: 20071005, end: 20071005
  9. SOLIRIS [Suspect]
     Dosage: 900 MG, SINGLE
     Route: 042
     Dates: start: 20071019, end: 20071019
  10. SOLIRIS [Suspect]
     Dosage: 900 MG, SINGLE
     Route: 042
     Dates: start: 20071105, end: 20071105
  11. ENANTONE LP [Concomitant]
     Indication: PROSTATE CANCER
     Dosage: 11.25 UNK, 1 EVERY 3 MONTHS
     Dates: start: 20050501
  12. FERRIPROX [Concomitant]
     Dosage: 8, QD
     Route: 048
     Dates: start: 20060901
  13. CASODEX [Concomitant]
     Indication: PROSTATE CANCER
     Dosage: 50 UNK, QD
  14. ASPEGIC 325 [Concomitant]
     Indication: THROMBOSIS
     Dosage: 250 UNK, QD
     Route: 048
  15. OMEXEL LP [Concomitant]
     Dosage: .4 UNK, QD
  16. ORACILLINE [Concomitant]
     Indication: PROPHYLAXIS
     Dosage: 2 MILLION UNITS, QD
     Route: 048
     Dates: start: 20070701
  17. DEROXAT [Concomitant]
     Dosage: 20 UNK, QD
     Route: 048
  18. ZOCOR [Concomitant]
     Dosage: 20 UNK, QD
     Route: 048

REACTIONS (2)
  - COOMBS DIRECT TEST POSITIVE [None]
  - HAEMOLYSIS [None]
